FAERS Safety Report 7558172-6 (Version None)
Quarter: 2011Q2

REPORT INFORMATION
  Report Type: 
  Country: None (occurrence: None)
  Receive Date: 20110620
  Receipt Date: 20110603
  Transmission Date: 20111010
  Serious: No
  Sender: FDA-Public Use
  Company Number: US-B.I. PHARMACEUTICALS,INC./RIDGEFIELD-2011-BP-09396BP

PATIENT
  Age: 76 Year
  Sex: Female

DRUGS (6)
  1. LISINOPRIL [Concomitant]
     Dosage: 20 MG
  2. NIASPAN [Concomitant]
     Dosage: 500 MG
  3. ATENOLOL [Concomitant]
     Dosage: 50 MG
  4. DILTIAZEM CD [Concomitant]
     Dosage: 180 MG
     Dates: end: 20110215
  5. PRADAXA [Suspect]
     Route: 048
     Dates: end: 20110222
  6. VYTORIN [Concomitant]
     Dates: end: 20110215

REACTIONS (2)
  - MYALGIA [None]
  - ARTHRALGIA [None]
